FAERS Safety Report 14269375 (Version 1)
Quarter: 2017Q4

REPORT INFORMATION
  Report Type: Spontaneous
  Country: US (occurrence: US)
  Receive Date: 20171211
  Receipt Date: 20171211
  Transmission Date: 20180321
  Serious: Yes (Hospitalization, Other)
  Sender: FDA-Public Use
  Company Number: US-OTSUKA-2017_025069

PATIENT
  Sex: Male

DRUGS (3)
  1. ABILIFY [Suspect]
     Active Substance: ARIPIPRAZOLE
     Indication: MAJOR DEPRESSION
     Dosage: 30 MG, QD
     Route: 065
     Dates: start: 201011, end: 201504
  2. ABILIFY [Suspect]
     Active Substance: ARIPIPRAZOLE
     Indication: ANXIETY
     Dosage: UNK
     Route: 065
  3. ABILIFY [Suspect]
     Active Substance: ARIPIPRAZOLE
     Indication: PANIC ATTACK
     Dosage: UNK
     Route: 065

REACTIONS (10)
  - Impulsive behaviour [Unknown]
  - Suicidal ideation [Unknown]
  - Injury [Unknown]
  - Mental disorder [Unknown]
  - Suicide attempt [Unknown]
  - Brain injury [Unknown]
  - Gambling [Unknown]
  - Emotional distress [Unknown]
  - Prescribed overdose [Unknown]
  - Obsessive-compulsive disorder [Unknown]
